FAERS Safety Report 7930277-7 (Version None)
Quarter: 2011Q4

REPORT INFORMATION
  Report Type: 
  Country: None (occurrence: None)
  Receive Date: 20111118
  Receipt Date: 20111118
  Transmission Date: 20120403
  Serious: Yes (Hospitalization)
  Sender: FDA-Public Use
  Company Number: None

PATIENT
  Sex: Female
  Weight: 77.3 kg

DRUGS (3)
  1. RITUXIMAB 375 MG/M2 GENENTECH [Suspect]
     Indication: CHRONIC LYMPHOCYTIC LEUKAEMIA
     Dosage: 713 MG DY 1 IV
     Route: 042
     Dates: start: 20111006
  2. BENDAMUSTINE 90 MG/M2 MILLENNIUM [Suspect]
     Indication: CHRONIC LYMPHOCYTIC LEUKAEMIA
     Dosage: 171 MG X 2 DYS, 1,2 IV
     Route: 042
     Dates: start: 20111006
  3. BENDAMUSTINE 90 MG/M2 MILLENNIUM [Suspect]
     Indication: CHRONIC LYMPHOCYTIC LEUKAEMIA
     Dosage: 171 MG X 2 DYS, 1,2 IV
     Route: 042
     Dates: start: 20111007

REACTIONS (5)
  - FEBRILE NEUTROPENIA [None]
  - HYPOTENSION [None]
  - SEPTIC SHOCK [None]
  - HYPOKALAEMIA [None]
  - PNEUMONITIS [None]
